FAERS Safety Report 6283970-9 (Version None)
Quarter: 2009Q3

REPORT INFORMATION
  Report Type: 
  Country: None (occurrence: None)
  Receive Date: 20090722
  Receipt Date: 20090715
  Transmission Date: 20100115
  Serious: Yes (Death)
  Sender: FDA-Public Use
  Company Number: 2009-200908-NL

PATIENT
  Age: 57 Year
  Sex: Male

DRUGS (18)
  1. DEXAMETHASONE [Suspect]
     Indication: WALDENSTROM'S MACROGLOBULINAEMIA
     Dosage: 2 MG ALT ORAL
     Route: 048
     Dates: start: 20040201
  2. CHLORAMBUCIL (SEE ATTACHED PAGES FOR ADDITIONAL SUSPECT DRUGS) [Suspect]
     Indication: WALDENSTROM'S MACROGLOBULINAEMIA
     Dosage: 10 MG QD/DF
     Dates: end: 20030401
  3. CYCLOPHOSPHAMIDE [Suspect]
     Indication: WALDENSTROM'S MACROGLOBULINAEMIA
     Dosage: 400 MG BID ORAL
     Route: 048
     Dates: start: 20031101
  4. FLUDARABINE (SEE ATTACHED PAGES FOR ADDITIONAL SUSPECT DRUGS) [Suspect]
     Indication: WALDENSTROM'S MACROGLOBULINAEMIA
     Dosage: DF
     Dates: start: 20030301, end: 20031101
  5. THALIDOMIDE [Suspect]
     Indication: WALDENSTROM'S MACROGLOBULINAEMIA
     Dosage: 50 MG QD/100 MG QD ORAL
     Route: 048
     Dates: start: 20040201
  6. MEROPENEM [Concomitant]
  7. METRONIDAZOLE [Concomitant]
  8. AMPHOTERICIN B [Concomitant]
  9. PYRIMETHAMINE [Concomitant]
  10. SULPHADIAZINE [Concomitant]
  11. FOLINIC ACID [Concomitant]
  12. ACYCLOVIR [Concomitant]
  13. COTRIM [Concomitant]
  14. RITUXIMAB [Concomitant]
  15. DEFEROXAMINE MESYLATE [Concomitant]
  16. GENTAMICIN [Concomitant]
  17. ERTAPENEM [Concomitant]
  18. CIPROFLAXACIN [Concomitant]

REACTIONS (15)
  - BONE MARROW FAILURE [None]
  - CEREBRAL HAEMATOMA [None]
  - CEREBRAL TOXOPLASMOSIS [None]
  - CITROBACTER INFECTION [None]
  - CITROBACTER SEPSIS [None]
  - ECTHYMA [None]
  - GANGRENE [None]
  - GENERAL PHYSICAL HEALTH DETERIORATION [None]
  - HEMIPARESIS [None]
  - HYPOGAMMAGLOBULINAEMIA [None]
  - INCISION SITE HAEMATOMA [None]
  - MOLLUSCUM CONTAGIOSUM [None]
  - PANCYTOPENIA [None]
  - PSEUDOMONAL SEPSIS [None]
  - STREPTOCOCCAL INFECTION [None]
